FAERS Safety Report 7183640-9 (Version None)
Quarter: 2010Q4

REPORT INFORMATION
  Report Type: 
  Country: None (occurrence: None)
  Receive Date: 20101222
  Receipt Date: 20101215
  Transmission Date: 20110411
  Serious: Yes (Death)
  Sender: FDA-Public Use
  Company Number: US-CUBIST-2010S1001784

PATIENT
  Sex: Male

DRUGS (2)
  1. CUBICIN [Suspect]
     Indication: DEVICE RELATED INFECTION
  2. CUBICIN [Suspect]
     Indication: BACTERAEMIA

REACTIONS (3)
  - ACUTE MYELOID LEUKAEMIA [None]
  - BLOOD CREATINE PHOSPHOKINASE INCREASED [None]
  - GASTROINTESTINAL HAEMORRHAGE [None]
